FAERS Safety Report 26136377 (Version 1)
Quarter: 2025Q4

REPORT INFORMATION
  Report Type: Spontaneous
  Country: US (occurrence: US)
  Receive Date: 20251209
  Receipt Date: 20251209
  Transmission Date: 20260118
  Serious: No
  Sender: SANOFI AVENTIS
  Company Number: US-SA-2025SA366124

PATIENT
  Age: 63 Year
  Sex: Female

DRUGS (12)
  1. DUPIXENT [Suspect]
     Active Substance: DUPILUMAB
     Indication: Chronic obstructive pulmonary disease
     Dosage: 300 MG, QOW
     Route: 058
     Dates: start: 20251020
  2. ATORVASTATIN [Concomitant]
     Active Substance: ATORVASTATIN
  3. AZITHROMYCIN [Concomitant]
     Active Substance: AZITHROMYCIN
  4. LORAZEPAM [Concomitant]
     Active Substance: LORAZEPAM
  5. PREDNISONE [Concomitant]
     Active Substance: PREDNISONE
  6. ALBUTEROL SULFATE [Concomitant]
     Active Substance: ALBUTEROL SULFATE
     Dosage: 2.5 MG
  7. AMLODIPINE BESYLATE [Concomitant]
     Active Substance: AMLODIPINE BESYLATE
  8. ASPIRIN [Concomitant]
     Active Substance: ASPIRIN
  9. AZITHROMYCIN [Concomitant]
     Active Substance: AZITHROMYCIN
  10. CARVEDILOL [Concomitant]
     Active Substance: CARVEDILOL
  11. MUCINEX [Concomitant]
     Active Substance: GUAIFENESIN
  12. SYMBICORT [Concomitant]
     Active Substance: BUDESONIDE\FORMOTEROL FUMARATE DIHYDRATE

REACTIONS (1)
  - Headache [Unknown]

NARRATIVE: CASE EVENT DATE: 20250101
